FAERS Safety Report 10879413 (Version 1)
Quarter: 2015Q1

REPORT INFORMATION
  Report Type: Spontaneous
  Country: US (occurrence: None)
  Receive Date: 20150224
  Receipt Date: 20150224
  Transmission Date: 20150721
  Serious: Yes (Hospitalization)
  Sender: FDA-Public Use
  Company Number: None

PATIENT
  Age: 49 Year
  Sex: Female
  Weight: 67 kg

DRUGS (1)
  1. ELOXATIN [Suspect]
     Active Substance: OXALIPLATIN
     Dates: end: 20150209

REACTIONS (4)
  - Rectal haemorrhage [None]
  - Neutropenia [None]
  - Hepatotoxicity [None]
  - Haemorrhoids [None]

NARRATIVE: CASE EVENT DATE: 20150213
